FAERS Safety Report 4889681-6 (Version None)
Quarter: 2006Q1

REPORT INFORMATION
  Report Type: 
  Country: None (occurrence: None)
  Receive Date: 20060124
  Receipt Date: 20051207
  Transmission Date: 20060701
  Serious: Yes (Other)
  Sender: FDA-Public Use
  Company Number: US-AMGEN-US160464

PATIENT
  Sex: Male
  Weight: 73 kg

DRUGS (5)
  1. EPOGEN [Suspect]
     Indication: ANAEMIA OF MALIGNANT DISEASE
     Route: 058
     Dates: start: 20000331, end: 20051206
  2. PREDNISONE [Concomitant]
  3. PRILOSEC [Concomitant]
  4. LIPITOR [Concomitant]
  5. ACYCLOVIR [Concomitant]

REACTIONS (5)
  - ANAEMIA [None]
  - CHRONIC LYMPHOCYTIC LEUKAEMIA [None]
  - DIALYSIS [None]
  - RENAL FAILURE CHRONIC [None]
  - THERAPEUTIC RESPONSE DECREASED [None]
